FAERS Safety Report 16208447 (Version 1)
Quarter: 2019Q2

REPORT INFORMATION
  Report Type: Spontaneous
  Country: US (occurrence: US)
  Receive Date: 20190417
  Receipt Date: 20190417
  Transmission Date: 20190711
  Serious: Yes (Hospitalization, Other)
  Sender: FDA-Public Use
  Company Number: US-JNJFOC-20190417001

PATIENT
  Age: 31 Year
  Sex: Male

DRUGS (1)
  1. INVOKANA [Suspect]
     Active Substance: CANAGLIFLOZIN
     Indication: PRODUCT USED FOR UNKNOWN INDICATION
     Route: 048

REACTIONS (8)
  - Acute kidney injury [Recovering/Resolving]
  - Gangrene [Unknown]
  - Abscess limb [Recovering/Resolving]
  - Osteomyelitis [Unknown]
  - Cellulitis [Recovering/Resolving]
  - Fournier^s gangrene [Unknown]
  - Postoperative wound infection [Unknown]
  - Foot amputation [Unknown]

NARRATIVE: CASE EVENT DATE: 20180501
